FAERS Safety Report 6737712-0 (Version None)
Quarter: 2010Q2

REPORT INFORMATION
  Report Type: 
  Country: None (occurrence: None)
  Receive Date: 20100520
  Receipt Date: 20100509
  Transmission Date: 20101027
  Serious: Yes (Hospitalization)
  Sender: FDA-Public Use
  Company Number: 1000013000

PATIENT
  Age: 48 Year
  Sex: Female

DRUGS (13)
  1. CARBAMAZEPINE [Suspect]
     Indication: SCHIZOAFFECTIVE DISORDER
     Dosage: 1200 MG (600 MG, 2 IN 1 D)
     Dates: end: 20070501
  2. CARBAMAZEPINE [Suspect]
     Indication: SCHIZOAFFECTIVE DISORDER
     Dosage: 800 MG (400 MG, 2 IN 1 D)
     Dates: start: 20070501
  3. CARBAMAZEPINE [Suspect]
     Indication: SCHIZOAFFECTIVE DISORDER
     Dosage: (8800 MG, ONCE)
     Dates: start: 20070617, end: 20070617
  4. ABILIFY [Suspect]
     Dosage: 15 MG (15 MG, 1 IN 1 D)
  5. ABILIFY [Suspect]
     Indication: SCHIZOAFFECTIVE DISORDER
     Dosage: 45 MG (45 MG,1 IN 1 D)
     Dates: end: 20070616
  6. ABILIFY [Suspect]
     Indication: SCHIZOAFFECTIVE DISORDER
     Dosage: 30 MG (30 MG, 1 IN 1 D); 45 MG (45 MG, 1 IN 1 D)
     Dates: start: 20070618, end: 20070621
  7. ABILIFY [Suspect]
     Indication: SCHIZOAFFECTIVE DISORDER
     Dosage: 30 MG (30 MG, 1 IN 1 D); 45 MG (45 MG, 1 IN 1 D)
     Dates: start: 20070622, end: 20070726
  8. ABILIFY [Suspect]
     Indication: SCHIZOAFFECTIVE DISORDER
     Dosage: 15 MG (15 MG, 1 IN 1 D)
     Dates: start: 20070727, end: 20070817
  9. VISTARIL [Concomitant]
  10. OMEPRAZOLE [Concomitant]
  11. ALBUTEROL (INHALANT) [Concomitant]
  12. GABAPENTIN [Concomitant]
  13. ESCITALOPRAM [Concomitant]

REACTIONS (9)
  - AKATHISIA [None]
  - ANXIETY [None]
  - EXTRAPYRAMIDAL DISORDER [None]
  - FATIGUE [None]
  - LETHARGY [None]
  - OVERDOSE [None]
  - PARKINSONIAN REST TREMOR [None]
  - SUICIDE ATTEMPT [None]
  - TREMOR [None]
